FAERS Safety Report 9097416 (Version 1)
Quarter: 2013Q1

REPORT INFORMATION
  Report Type: Spontaneous
  Country: US (occurrence: US)
  Receive Date: 20130212
  Receipt Date: 20130212
  Transmission Date: 20140127
  Serious: No
  Sender: FDA-Public Use
  Company Number: US-BAYER-2013-016097

PATIENT
  Age: 69 Year
  Sex: Female
  Weight: 79 kg

DRUGS (14)
  1. ALEVE CAPLET/TABLET,MIDOL EXTENDED RELIEF CAPLET [Suspect]
     Dosage: 2 DF, ONCE
     Route: 048
     Dates: start: 20130126
  2. AMLODIPINE [Concomitant]
  3. CRESTOR [Concomitant]
  4. PREMARIN [Concomitant]
  5. SYNTHROID [Concomitant]
  6. OMEPRAZOLE [Concomitant]
  7. MULTIVITAMIN PREPARATION + MINERAL SUPPLEMENT [Concomitant]
  8. VITAMIN D [Concomitant]
  9. CITRACAL PLUS BONE DENSITY BUILDER [Concomitant]
     Dosage: 2 DF, UNK
     Route: 048
  10. COENZYME Q10 [Concomitant]
  11. BABY ASPIRIN [Concomitant]
  12. FISH OIL [Concomitant]
  13. FLAX SEED OIL [Concomitant]
  14. TRANDOLAPRIL [Concomitant]

REACTIONS (1)
  - Pruritus [Recovered/Resolved]
